FAERS Safety Report 6739473-8 (Version None)
Quarter: 2010Q2

REPORT INFORMATION
  Report Type: 
  Country: None (occurrence: None)
  Receive Date: 20100521
  Receipt Date: 20100514
  Transmission Date: 20101027
  Serious: Yes (Hospitalization, Other)
  Sender: FDA-Public Use
  Company Number: USA/JAP/10/0012933

PATIENT
  Age: 29 Year
  Sex: Male

DRUGS (1)
  1. ZONISAMIDE [Suspect]
     Indication: TEMPORAL LOBE EPILEPSY
     Dosage: 300 MG, PER ORAL
     Route: 048

REACTIONS (18)
  - ALANINE AMINOTRANSFERASE INCREASED [None]
  - ANURIA [None]
  - ASPARTATE AMINOTRANSFERASE INCREASED [None]
  - BLOOD CREATININE INCREASED [None]
  - BODY TEMPERATURE DECREASED [None]
  - DECREASED APPETITE [None]
  - DRUG RASH WITH EOSINOPHILIA AND SYSTEMIC SYMPTOMS [None]
  - FACE OEDEMA [None]
  - GAMMA-GLUTAMYLTRANSFERASE INCREASED [None]
  - HAEMODIALYSIS [None]
  - LYMPHADENOPATHY [None]
  - RASH [None]
  - RASH MACULO-PAPULAR [None]
  - RENAL HYPERTROPHY [None]
  - RENAL IMPAIRMENT [None]
  - SOMNOLENCE [None]
  - SPLENOMEGALY [None]
  - URINE OUTPUT DECREASED [None]
